FAERS Safety Report 4615834-8 (Version None)
Quarter: 2005Q1

REPORT INFORMATION
  Report Type: 
  Country: None (occurrence: None)
  Receive Date: 20050321
  Receipt Date: 20050303
  Transmission Date: 20050727
  Serious: Yes (Hospitalization)
  Sender: FDA-Public Use
  Company Number: TRP_0077_2005

PATIENT
  Age: 51 Year
  Sex: Male

DRUGS (12)
  1. RIBASPHERE [Suspect]
     Indication: HEPATITIS C
     Dosage: 1200 MG QDAY PO
     Route: 048
     Dates: start: 20041130, end: 20050222
  2. INTERFERON GAMMA-1B/ INTERMUNE [Suspect]
     Indication: HEPATITIS C
     Dosage: 100 MCG 3XWK SC
     Route: 058
     Dates: start: 20041130, end: 20050222
  3. INFERGEN [Suspect]
     Indication: HEPATITIS C
     Dosage: 15 MCG QDAY SC
     Route: 058
     Dates: start: 20041130, end: 20050222
  4. PREVACID [Concomitant]
  5. PAXIL [Concomitant]
  6. ALBUTEROL [Concomitant]
  7. TYLENOL (CAPLET) [Concomitant]
  8. MIRALAX [Concomitant]
  9. MEGACE [Concomitant]
  10. IBUPROFEN [Concomitant]
  11. METAMUCIL-2 [Concomitant]
  12. ULTRAM [Concomitant]

REACTIONS (11)
  - BARRETT'S OESOPHAGUS [None]
  - CHILLS [None]
  - CONFUSIONAL STATE [None]
  - CONSTIPATION [None]
  - DECREASED APPETITE [None]
  - DEPRESSION [None]
  - DYSURIA [None]
  - INSOMNIA [None]
  - MELAENA [None]
  - MUSCLE SPASMS [None]
  - WEIGHT DECREASED [None]
